FAERS Safety Report 6316285-0 (Version None)
Quarter: 2009Q3

REPORT INFORMATION
  Report Type: 
  Country: None (occurrence: None)
  Receive Date: 20090819
  Receipt Date: 20090819
  Transmission Date: 20100115
  Serious: No
  Sender: FDA-Public Use
  Company Number: None

PATIENT
  Age: 54 Year
  Sex: Female
  Weight: 61.2356 kg

DRUGS (1)
  1. BOTOX [Suspect]
     Indication: MUSCLE DISORDER
     Dosage: 100UNITS
     Dates: start: 20090601, end: 20090601

REACTIONS (26)
  - ASTHENIA [None]
  - CARDIAC DISORDER [None]
  - CARDIO-RESPIRATORY DISTRESS [None]
  - DYSPNOEA [None]
  - DYSURIA [None]
  - FATIGUE [None]
  - FEELING ABNORMAL [None]
  - HYPERTENSION [None]
  - IMPAIRED WORK ABILITY [None]
  - INFLUENZA LIKE ILLNESS [None]
  - LUNG DISORDER [None]
  - MALAISE [None]
  - MICTURITION DISORDER [None]
  - MUSCLE ATROPHY [None]
  - MUSCLE DISORDER [None]
  - MUSCULAR WEAKNESS [None]
  - MUSCULOSKELETAL PAIN [None]
  - OEDEMA PERIPHERAL [None]
  - PAIN [None]
  - PAIN IN EXTREMITY [None]
  - PALPITATIONS [None]
  - PHARYNGEAL DISORDER [None]
  - SENSATION OF PRESSURE [None]
  - SENSORY DISTURBANCE [None]
  - SWELLING [None]
  - SWELLING FACE [None]
